FAERS Safety Report 14508370 (Version 1)
Quarter: 2018Q1

REPORT INFORMATION
  Report Type: Spontaneous
  Country: US (occurrence: US)
  Receive Date: 20180209
  Receipt Date: 20180209
  Transmission Date: 20180509
  Serious: Yes (Life-Threatening, Other)
  Sender: FDA-Public Use
  Company Number: US-JNJFOC-20180210455

PATIENT

DRUGS (2)
  1. IMODIUM [Suspect]
     Active Substance: LOPERAMIDE HYDROCHLORIDE
     Indication: WITHDRAWAL SYNDROME
     Route: 065
  2. IMODIUM [Suspect]
     Active Substance: LOPERAMIDE HYDROCHLORIDE
     Indication: PRODUCT USED FOR UNKNOWN INDICATION
     Route: 065

REACTIONS (4)
  - Ventricular tachycardia [Unknown]
  - Drug abuse [Unknown]
  - Constipation [Unknown]
  - Respiratory depression [Unknown]
